FAERS Safety Report 9209006 (Version 1)
Quarter: 2013Q1

REPORT INFORMATION
  Report Type: Spontaneous
  Country: US (occurrence: None)
  Receive Date: 20120820
  Receipt Date: 20120820
  Transmission Date: 20140127
  Serious: No
  Sender: FDA-Public Use
  Company Number: 1000037148

PATIENT
  Age: 69 Year
  Sex: Female

DRUGS (5)
  1. VIIBRYD [Suspect]
     Indication: DEPRESSION
     Route: 048
     Dates: start: 201205, end: 201206
  2. CELEBREX (CELECOXIB) [Concomitant]
  3. BENICAR (OLMESARTAN MEDOXOMIL)(OLMESARTAN MEDOXOMIL) [Concomitant]
  4. SIMVASTATIN(SIMVASTATIN)(SIMVASTATIN) [Suspect]
  5. CLONAZEPAM(CLONAZEPAM)(CLONAZEPAM) [Concomitant]

REACTIONS (2)
  - Headache [None]
  - Feeling jittery [None]
